FAERS Safety Report 19854748 (Version 2)
Quarter: 2021Q4

REPORT INFORMATION
  Report Type: Report from Study
  Country: BD (occurrence: BD)
  Receive Date: 20210920
  Receipt Date: 20211013
  Transmission Date: 20220303
  Serious: Yes (Death)
  Sender: FDA-Public Use
  Company Number: NVSC2021BD212896

PATIENT
  Age: 56 Year
  Sex: Male
  Weight: 55 kg

DRUGS (3)
  1. SANDOSTATIN [Suspect]
     Active Substance: OCTREOTIDE ACETATE
     Indication: Post procedural haemorrhage
     Dosage: UNK
     Route: 058
     Dates: start: 20210726, end: 20210729
  2. SANDOSTATIN [Suspect]
     Active Substance: OCTREOTIDE ACETATE
  3. SANDOSTATIN [Suspect]
     Active Substance: OCTREOTIDE ACETATE

REACTIONS (2)
  - Post procedural complication [Fatal]
  - Product use in unapproved indication [Unknown]
